FAERS Safety Report 9624631 (Version 1)
Quarter: 2013Q4

REPORT INFORMATION
  Report Type: Spontaneous
  Country: FR (occurrence: FR)
  Receive Date: 20131015
  Receipt Date: 20131015
  Transmission Date: 20140711
  Serious: Yes (Death)
  Sender: FDA-Public Use
  Company Number: FR-B.I. PHARMACEUTICALS,INC./RIDGEFIELD-2013-FF-02519FF

PATIENT
  Age: 87 Year
  Sex: Male

DRUGS (6)
  1. PRADAXA [Suspect]
     Indication: ATRIAL FIBRILLATION
     Dosage: 220 MG
     Route: 048
     Dates: start: 20120828, end: 20121224
  2. COLCHICINE [Suspect]
     Indication: GOUT
     Route: 048
     Dates: end: 20121224
  3. KARDEGIC [Concomitant]
     Route: 048
     Dates: end: 20121224
  4. ALDACTONE [Concomitant]
     Route: 048
     Dates: end: 20121224
  5. INEXIUM [Concomitant]
     Route: 048
  6. ACTISKENAN [Concomitant]
     Route: 048

REACTIONS (1)
  - Anaemia [Fatal]
